FAERS Safety Report 17849065 (Version 1)
Quarter: 2020Q2

REPORT INFORMATION
  Report Type: Report from Study
  Country: None (occurrence: CO)
  Receive Date: 20200602
  Receipt Date: 20200602
  Transmission Date: 20200714
  Serious: Yes (Death)
  Sender: FDA-Public Use
  Company Number: CO-ABBVIE-20K-036-3426966-00

PATIENT
  Age: 52 Year
  Sex: Female
  Weight: 49 kg

DRUGS (2)
  1. ZEMPLAR [Suspect]
     Active Substance: PARICALCITOL
     Indication: CHRONIC KIDNEY DISEASE
  2. ZEMPLAR [Suspect]
     Active Substance: PARICALCITOL
     Indication: HYPERPARATHYROIDISM SECONDARY
     Route: 042
     Dates: start: 20160229, end: 20200528

REACTIONS (1)
  - Brain death [Fatal]

NARRATIVE: CASE EVENT DATE: 20200530
